FAERS Safety Report 12486937 (Version 1)
Quarter: 2016Q2

REPORT INFORMATION
  Report Type: Spontaneous
  Country: None (occurrence: None)
  Receive Date: 20160621
  Receipt Date: 20160621
  Transmission Date: 20160815
  Serious: No
  Sender: FDA-Public Use
  Company Number: None

PATIENT
  Age: 71 Year
  Sex: Male

DRUGS (1)
  1. XELJANZ [Suspect]
     Active Substance: TOFACITINIB CITRATE
     Indication: RHEUMATOID ARTHRITIS
     Dosage: 5MG TAB 1-QD PO
     Route: 048
     Dates: start: 20150713

REACTIONS (2)
  - Gastroenteritis viral [None]
  - Drug dose omission [None]

NARRATIVE: CASE EVENT DATE: 201605
